FAERS Safety Report 17213581 (Version 6)
Quarter: 2022Q3

REPORT INFORMATION
  Report Type: Report from Study
  Country: FR (occurrence: FR)
  Receive Date: 20191230
  Receipt Date: 20220924
  Transmission Date: 20221027
  Serious: Yes (Other)
  Sender: FDA-Public Use
  Company Number: FR-009507513-1907FRA014980

PATIENT
  Age: 24 Year
  Sex: Male
  Weight: 48 kg

DRUGS (24)
  1. TOBRAMYCIN [Suspect]
     Active Substance: TOBRAMYCIN
     Indication: Pneumonia
     Dosage: 200 MILLIGRAM/ DAY (QD) (200 MG, QD)
     Route: 042
     Dates: start: 20190715, end: 20190722
  2. TOBRAMYCIN [Suspect]
     Active Substance: TOBRAMYCIN
     Indication: Bacteraemia
     Dosage: 2 DF, QD (1 AMPOULE, BID)
     Route: 042
     Dates: start: 20190716
  3. TOBRAMYCIN [Suspect]
     Active Substance: TOBRAMYCIN
     Dosage: 200 MG, QD (200 MILLIGRAM, ONCE/24 HOURS)
     Route: 042
     Dates: start: 20190716, end: 20190722
  4. VORICONAZOLE [Suspect]
     Active Substance: VORICONAZOLE
     Indication: Prophylaxis
     Dosage: 200 (UNITS NOT REPORTED), ONCE A DAY (QD), 1 OT
     Route: 048
     Dates: start: 20190718, end: 20190731
  5. VORICONAZOLE [Suspect]
     Active Substance: VORICONAZOLE
     Dosage: 200 (UNITS NOT REPORTED), ONCE A DAY (QD)
     Route: 048
     Dates: start: 20190718, end: 20190731
  6. VALGANCICLOVIR [Suspect]
     Active Substance: VALGANCICLOVIR
     Indication: Prophylaxis
     Dosage: 900 MG, QD (900 MILLIGRAM, ONCE A DAY (QD))
     Route: 048
     Dates: start: 20190719, end: 20190731
  7. CEFTOLOZANE SULFATE [Suspect]
     Active Substance: CEFTOLOZANE SULFATE
     Indication: Pneumonia
     Dosage: 6 G, QD (2 GRAM, TID  )
     Route: 042
     Dates: start: 20190719, end: 20190729
  8. CEFTOLOZANE SULFATE [Suspect]
     Active Substance: CEFTOLOZANE SULFATE
     Indication: Bacteraemia
     Dosage: 3 DF, QD (1 G/ 0.5 G, 3 TIME/ 24 HOURS)
     Route: 042
     Dates: start: 20190729, end: 20190731
  9. BACTRIM [Suspect]
     Active Substance: SULFAMETHOXAZOLE\TRIMETHOPRIM
     Indication: Prophylaxis
     Dosage: 3 DF, QW (1 TABLET, THREE TIMES A WEEK)
     Route: 048
     Dates: start: 20190725, end: 20190731
  10. CEFTOLOZANE SULFATE\TAZOBACTAM SODIUM [Suspect]
     Active Substance: CEFTOLOZANE SULFATE\TAZOBACTAM SODIUM
     Indication: Pneumonia
     Dosage: 6 G, QD (2 GRAM, TID)
     Route: 042
     Dates: start: 20190719, end: 20190729
  11. CEFTOLOZANE SULFATE\TAZOBACTAM SODIUM [Suspect]
     Active Substance: CEFTOLOZANE SULFATE\TAZOBACTAM SODIUM
     Indication: Bacteraemia
     Dosage: 3 DF, QD (1 G/ 0.5 G, 3 TIME/ 24 HOURS)
     Route: 042
     Dates: start: 20190729, end: 20190731
  12. CEFTOLOZANE SULFATE\TAZOBACTAM SODIUM [Suspect]
     Active Substance: CEFTOLOZANE SULFATE\TAZOBACTAM SODIUM
     Indication: Pneumonia
     Dosage: 1 DOSAGE FORM, 1 G/ 0.5 G, 0.33 DAY
     Route: 048
     Dates: start: 20190729, end: 20190731
  13. CEFTOLOZANE SULFATE\TAZOBACTAM SODIUM [Suspect]
     Active Substance: CEFTOLOZANE SULFATE\TAZOBACTAM SODIUM
     Indication: Bacteraemia
  14. PREDNISONE [Concomitant]
     Active Substance: PREDNISONE
     Indication: Antiinflammatory therapy
     Dosage: 20 MILLIGRAM, QD (20 MG, QD)
     Route: 048
  15. SKENAN [Concomitant]
     Active Substance: MORPHINE SULFATE
     Indication: Pain prophylaxis
     Dosage: 1 OT, QD (2 (UNITS NOT REPORTED) A DAY (QD))
     Route: 048
  16. SKENAN [Concomitant]
     Active Substance: MORPHINE SULFATE
     Dosage: 2 (UNITS NOT REPORTED) A DAY (QD)
     Route: 048
  17. CELLCEPT [Concomitant]
     Active Substance: MYCOPHENOLATE MOFETIL
     Indication: Prophylaxis against transplant rejection
     Dosage: 1400 MG, QD (700 MILLIGRAM, TWO TIMES A DAY (BID)
     Route: 048
  18. COLISTIN [Concomitant]
     Active Substance: COLISTIN
     Indication: Product used for unknown indication
     Dosage: 6 DOSAGE FORM, QD (6 DF, QD (2 MUI, TID)
     Route: 065
     Dates: start: 20190717
  19. CALCIPARINE [Concomitant]
     Active Substance: HEPARIN CALCIUM
     Indication: Thrombosis prophylaxis
     Dosage: 1 ML, QD (0.5 MILLILITER, TWO TIMES A DAY (BID))
     Route: 065
     Dates: start: 20190718, end: 20190801
  20. FUROSEMIDE [Concomitant]
     Active Substance: FUROSEMIDE
     Indication: Supportive care
     Dosage: 20 MILLIGRAM, QD (20 MG, QD)
     Route: 048
     Dates: end: 20190801
  21. PROGRAF [Concomitant]
     Active Substance: TACROLIMUS
     Indication: Prophylaxis against transplant rejection
     Dosage: 1 MILLIGRAM, TWO TIMES A DAY (BID)
     Route: 060
  22. PROGRAF [Concomitant]
     Active Substance: TACROLIMUS
     Dosage: 1 MILLIGRAM, TWO TIMES A DAY (BID)
     Route: 060
  23. TOBRAMYCIN [Concomitant]
     Active Substance: TOBRAMYCIN
     Dosage: 200 MILLIGRAM, QD  (200 MILLIGRAM, ONCE/24 HOURS)
     Route: 065
     Dates: start: 20190716, end: 20190722
  24. TOBRAMYCIN [Concomitant]
     Active Substance: TOBRAMYCIN
     Dosage: 2 DOSAGE FORM, QD  (1 AMPOULE, BID)
     Route: 065
     Dates: start: 20190716

REACTIONS (4)
  - Renal impairment [Recovering/Resolving]
  - Intentional product use issue [Unknown]
  - Off label use [Unknown]
  - Overdose [Unknown]

NARRATIVE: CASE EVENT DATE: 20190719
